FAERS Safety Report 7347540-3 (Version None)
Quarter: 2011Q1

REPORT INFORMATION
  Report Type: 
  Country: None (occurrence: None)
  Receive Date: 20110311
  Receipt Date: 20110304
  Transmission Date: 20110831
  Serious: Yes (Other)
  Sender: FDA-Public Use
  Company Number: US-BRISTOL-MYERS SQUIBB COMPANY-15591365

PATIENT
  Age: 59 Year
  Sex: Female

DRUGS (3)
  1. APIDRA [Suspect]
     Dosage: INJECTION:SOLUTION 1 DF = 100 IU/ML 10 TO 50 UNITS
     Route: 058
  2. LANTUS [Suspect]
     Indication: TYPE 2 DIABETES MELLITUS
     Dosage: 1 DF = 55 UNITS PARENTERAL:INJECTION:SOLUTION 100 IU/ML
     Route: 058
     Dates: start: 20100801
  3. COUMADIN [Suspect]
     Dosage: 1 DF = 2 TO 4MG
     Route: 065

REACTIONS (1)
  - CEREBROVASCULAR ACCIDENT [None]
